FAERS Safety Report 13360046 (Version 1)
Quarter: 2017Q1

REPORT INFORMATION
  Report Type: Spontaneous
  Country: US (occurrence: US)
  Receive Date: 20170322
  Receipt Date: 20170322
  Transmission Date: 20170429
  Serious: Yes (Hospitalization)
  Sender: FDA-Public Use
  Company Number: US-MYLANLABS-2017M1017595

PATIENT

DRUGS (2)
  1. CISPLATIN. [Suspect]
     Active Substance: CISPLATIN
     Indication: LUNG ADENOCARCINOMA METASTATIC
     Route: 065
  2. PEMETREXED [Suspect]
     Active Substance: PEMETREXED
     Indication: LUNG ADENOCARCINOMA METASTATIC
     Route: 065

REACTIONS (1)
  - Viral load increased [Recovered/Resolved]
